FAERS Safety Report 20450201 (Version 1)
Quarter: 2022Q1

REPORT INFORMATION
  Report Type: Spontaneous
  Country: US (occurrence: None)
  Receive Date: 20220209
  Receipt Date: 20220209
  Transmission Date: 20220423
  Serious: Yes (Hospitalization)
  Sender: FDA-Public Use
  Company Number: 2022A055406

PATIENT
  Age: 24406 Day
  Sex: Male
  Weight: 85.3 kg

DRUGS (2)
  1. IMFINZI [Interacting]
     Active Substance: DURVALUMAB
     Indication: Non-small cell lung cancer
     Dosage: ONCE A MONTH
     Route: 042
     Dates: start: 202010, end: 20211011
  2. MODERNA COVID-19 VACCINE [Interacting]
     Active Substance: ELASOMERAN
     Dosage: BOOSTER
     Route: 065
     Dates: start: 20211018

REACTIONS (13)
  - Drug interaction [Unknown]
  - Gait disturbance [Not Recovered/Not Resolved]
  - Arthralgia [Not Recovered/Not Resolved]
  - Muscle disorder [Not Recovered/Not Resolved]
  - Neurological symptom [Not Recovered/Not Resolved]
  - Influenza like illness [Unknown]
  - Nausea [Unknown]
  - Vomiting [Unknown]
  - Diarrhoea [Unknown]
  - Myalgia [Not Recovered/Not Resolved]
  - Pyrexia [Unknown]
  - Tremor [Unknown]
  - Mobility decreased [Not Recovered/Not Resolved]

NARRATIVE: CASE EVENT DATE: 20211018
